FAERS Safety Report 9249109 (Version 1)
Quarter: 2013Q2

REPORT INFORMATION
  Report Type: Report from Study
  Country: US (occurrence: US)
  Receive Date: 20130423
  Receipt Date: 20130423
  Transmission Date: 20140414
  Serious: Yes (Other)
  Sender: FDA-Public Use
  Company Number: US-ABBOTT-13P-163-1077462-00

PATIENT
  Age: 39 Year
  Sex: Female

DRUGS (1)
  1. HUMIRA [Suspect]
     Indication: PSORIATIC ARTHROPATHY
     Route: 058
     Dates: start: 20120723, end: 20130401

REACTIONS (4)
  - White blood cell count abnormal [Unknown]
  - Lymphoma [Unknown]
  - Off label use [Unknown]
  - T-lymphocyte count increased [Unknown]
